FAERS Safety Report 10732821 (Version 4)
Quarter: 2015Q2

REPORT INFORMATION
  Report Type: Report from Study
  Country: AU (occurrence: AU)
  Receive Date: 20150123
  Receipt Date: 20150526
  Transmission Date: 20150821
  Serious: Yes (Other)
  Sender: FDA-Public Use
  Company Number: PHHY2014AU070019

PATIENT
  Age: 42 Year
  Sex: Female
  Weight: 70 kg

DRUGS (22)
  1. VITAMIN D3 [Concomitant]
     Active Substance: CHOLECALCIFEROL
     Indication: VITAMIN D DECREASED
     Dosage: 1000 U, QD
     Route: 048
     Dates: start: 2011
  2. TECFIDERA [Concomitant]
     Active Substance: DIMETHYL FUMARATE
     Dosage: 240 MG, BID
     Route: 048
     Dates: start: 20140513
  3. VITAMIN B12 [Concomitant]
     Active Substance: CYANOCOBALAMIN
     Indication: PROPHYLAXIS
     Dosage: 1000 MG, QD
     Route: 048
     Dates: start: 2011
  4. ASPIRIN. [Concomitant]
     Active Substance: ASPIRIN
     Indication: FLUSHING
     Dosage: 1 DF, QD
     Route: 048
     Dates: start: 20140321, end: 20140821
  5. AMOXIL//AMOXICILLIN [Concomitant]
     Indication: LOWER RESPIRATORY TRACT INFECTION
     Dosage: 250 MG, TID
     Route: 048
     Dates: start: 20131204, end: 20131211
  6. RAMIPRIL. [Concomitant]
     Active Substance: RAMIPRIL
     Indication: HYPERTENSION
     Dosage: 2.5 MG, QD
     Route: 048
     Dates: start: 2011
  7. APIDRA [Concomitant]
     Active Substance: INSULIN GLULISINE
     Indication: DIABETES MELLITUS
     Dosage: 4 TO 10 U, TID
     Route: 058
     Dates: start: 2010
  8. GILENYA [Suspect]
     Active Substance: FINGOLIMOD HYDROCHLORIDE
     Indication: MULTIPLE SCLEROSIS
     Dosage: 500 UG, QD
     Route: 048
     Dates: start: 20131204, end: 20140210
  9. LEVEMIR [Concomitant]
     Active Substance: INSULIN DETEMIR
     Indication: DIABETES MELLITUS
     Dosage: 12 U, BID
     Route: 058
     Dates: start: 2010
  10. TECFIDERA [Concomitant]
     Active Substance: DIMETHYL FUMARATE
     Dosage: 120 MG, QD
     Route: 048
     Dates: start: 20140321, end: 20140328
  11. GLUCAGON. [Concomitant]
     Active Substance: GLUCAGON
     Indication: DIABETES MELLITUS
     Dosage: 1 MG, PRN
     Route: 065
     Dates: start: 201409
  12. TECFIDERA [Concomitant]
     Active Substance: DIMETHYL FUMARATE
     Indication: MULTIPLE SCLEROSIS
     Dosage: 120 MG, BID
     Route: 048
     Dates: start: 20140320, end: 20140320
  13. LYRICA [Concomitant]
     Active Substance: PREGABALIN
     Indication: NEURALGIA
     Dosage: 300 MG, BID
     Route: 048
     Dates: start: 2011
  14. FISH OIL [Concomitant]
     Active Substance: FISH OIL
     Indication: PROPHYLAXIS
     Dosage: 3000 MG, QD
     Route: 048
     Dates: start: 2011
  15. TECFIDERA [Concomitant]
     Active Substance: DIMETHYL FUMARATE
     Dosage: 120 MG, QD
     Route: 048
     Dates: start: 20140401, end: 20140512
  16. CYMBALTA [Concomitant]
     Active Substance: DULOXETINE HYDROCHLORIDE
     Indication: DEPRESSION
     Dosage: 60 MG, QD
     Route: 065
     Dates: start: 20131206
  17. ZOLOFT [Concomitant]
     Active Substance: SERTRALINE HYDROCHLORIDE
     Indication: DEPRESSION
     Dosage: 50 MG, QD
     Route: 048
     Dates: start: 2012, end: 20131205
  18. DIAZEPAM. [Concomitant]
     Active Substance: DIAZEPAM
     Indication: ANXIETY
     Dosage: 5 MG, PRN
     Route: 048
     Dates: start: 2011
  19. TECFIDERA [Concomitant]
     Active Substance: DIMETHYL FUMARATE
     Dosage: 120 MG, BID
     Route: 048
     Dates: start: 20140329, end: 20140331
  20. PHENERGAN//PROMETHAZINE [Concomitant]
     Indication: FLUSHING
     Dosage: 2 DF, QD
     Route: 048
     Dates: start: 20140320, end: 20140320
  21. CLARITIN [Concomitant]
     Active Substance: LORATADINE
     Indication: FLUSHING
     Dosage: 2 DF, QD
     Route: 048
     Dates: start: 20140401, end: 20140401
  22. KEFLEX//CEFALEXIN [Concomitant]
     Indication: PHARYNGITIS
     Dosage: 500 MG, TID
     Route: 048
     Dates: start: 20140520, end: 20140612

REACTIONS (18)
  - Diabetes mellitus inadequate control [Unknown]
  - Diabetic retinal oedema [Unknown]
  - Skin burning sensation [Unknown]
  - Eye pain [Unknown]
  - Macular oedema [Recovered/Resolved]
  - Alanine aminotransferase increased [Unknown]
  - Episcleritis [Recovered/Resolved]
  - Cataract subcapsular [Unknown]
  - Dizziness [Unknown]
  - Cystoid macular oedema [Recovered/Resolved]
  - Vision blurred [Unknown]
  - Sensory disturbance [Recovered/Resolved]
  - Headache [Unknown]
  - Lymphocyte count decreased [Unknown]
  - Gamma-glutamyltransferase increased [Unknown]
  - Diabetic retinopathy [Recovered/Resolved]
  - Migraine [Unknown]
  - Skin burning sensation [Recovered/Resolved]

NARRATIVE: CASE EVENT DATE: 20131205
